FAERS Safety Report 15185185 (Version 2)
Quarter: 2018Q3

REPORT INFORMATION
  Report Type: Spontaneous
  Country: US (occurrence: US)
  Receive Date: 20180723
  Receipt Date: 20180815
  Transmission Date: 20181010
  Serious: Yes (Other)
  Sender: FDA-Public Use
  Company Number: US-CELGENEUS-USA-20180705245

PATIENT
  Sex: Female
  Weight: 63.56 kg

DRUGS (1)
  1. REVLIMID [Suspect]
     Active Substance: LENALIDOMIDE
     Indication: PLASMA CELL MYELOMA
     Dosage: 25 MILLIGRAM
     Route: 048
     Dates: start: 20180427

REACTIONS (6)
  - Vision blurred [Recovered/Resolved with Sequelae]
  - Swelling face [Not Recovered/Not Resolved]
  - Bone pain [Not Recovered/Not Resolved]
  - Joint swelling [Recovered/Resolved with Sequelae]
  - Burning sensation [Recovered/Resolved with Sequelae]
  - Myalgia [Not Recovered/Not Resolved]
